FAERS Safety Report 4816621-8 (Version None)
Quarter: 2005Q4

REPORT INFORMATION
  Report Type: 
  Country: None (occurrence: None)
  Receive Date: 20051031
  Receipt Date: 20051031
  Transmission Date: 20060501
  Serious: Yes (Death)
  Sender: FDA-Public Use
  Company Number: None

PATIENT
  Age: 49 Year
  Sex: Male

DRUGS (7)
  1. PROPOFOL [Suspect]
     Indication: SEDATION
     Dosage: 2.4 MG/KG/HR
     Dates: start: 20050422, end: 20050502
  2. VASOPRESSIN [Concomitant]
  3. NOREPINEPHRINE [Concomitant]
  4. ZOSYN [Concomitant]
  5. VANCOMYCIN [Concomitant]
  6. CEFEPIME [Concomitant]
  7. DROTRECOGIN ALFA [Concomitant]

REACTIONS (9)
  - BLOOD CREATINE PHOSPHOKINASE INCREASED [None]
  - CARDIAC ARREST [None]
  - CIRCULATORY COLLAPSE [None]
  - HAEMODIALYSIS [None]
  - HEPATIC FAILURE [None]
  - LACTIC ACIDOSIS [None]
  - MITOCHONDRIAL TOXICITY [None]
  - PROPOFOL INFUSION SYNDROME [None]
  - RENAL FAILURE [None]
